FAERS Safety Report 7222748-6 (Version None)
Quarter: 2011Q1

REPORT INFORMATION
  Report Type: 
  Country: None (occurrence: None)
  Receive Date: 20110112
  Receipt Date: 20101110
  Transmission Date: 20110831
  Serious: No
  Sender: FDA-Public Use
  Company Number: US-BAYER-2010-004914

PATIENT
  Sex: Male

DRUGS (1)
  1. ALEVE-D SINUS + COLD [Suspect]
     Dosage: UNK
     Dates: start: 20101101, end: 20101106

REACTIONS (1)
  - DRUG EFFECT DECREASED [None]
